FAERS Safety Report 9466655 (Version 1)
Quarter: 2013Q3

REPORT INFORMATION
  Report Type: Spontaneous
  Country: DE (occurrence: DE)
  Receive Date: 20130820
  Receipt Date: 20130820
  Transmission Date: 20140515
  Serious: Yes (Other)
  Sender: FDA-Public Use
  Company Number: DE-TEVA-425665GER

PATIENT
  Age: 0 Year
  Sex: Male

DRUGS (1)
  1. LAMOTRIGINE [Suspect]
     Route: 063

REACTIONS (2)
  - Diarrhoea neonatal [Recovered/Resolved]
  - Faeces discoloured [Recovered/Resolved]
